FAERS Safety Report 8121807-3 (Version None)
Quarter: 2012Q1

REPORT INFORMATION
  Report Type: 
  Country: None (occurrence: None)
  Receive Date: 20120207
  Receipt Date: 20120207
  Transmission Date: 20120608
  Serious: Yes (Hospitalization)
  Sender: FDA-Public Use
  Company Number: None

PATIENT
  Sex: Female
  Weight: 96 kg

DRUGS (2)
  1. TAXOL [Suspect]
     Dosage: 346 MG
  2. CARBOPLATIN [Suspect]
     Dosage: 388 MG

REACTIONS (4)
  - DIZZINESS [None]
  - FALL [None]
  - DEHYDRATION [None]
  - ASTHENIA [None]
